FAERS Safety Report 12606469 (Version 1)
Quarter: 2016Q3

REPORT INFORMATION
  Report Type: Spontaneous
  Country: JP (occurrence: JP)
  Receive Date: 20160729
  Receipt Date: 20160729
  Transmission Date: 20161109
  Serious: Yes (Hospitalization)
  Sender: FDA-Public Use
  Company Number: JP-ELI_LILLY_AND_COMPANY-JP201607009933

PATIENT
  Age: 12 Year
  Sex: Female
  Weight: 148 kg

DRUGS (7)
  1. VITAMEDIN                          /00176001/ [Concomitant]
     Dosage: UNK
     Route: 048
     Dates: start: 20160602
  2. URSO [Concomitant]
     Active Substance: URSODIOL
     Dosage: UNK
     Route: 048
     Dates: start: 20160602
  3. ALINAXIN F [Concomitant]
     Dosage: UNK
     Route: 048
     Dates: start: 20160602
  4. GLUCONATE DE POTASSIUM [Concomitant]
     Dosage: UNK
     Route: 048
     Dates: start: 20160602
  5. ZYPREXA [Suspect]
     Active Substance: OLANZAPINE
     Indication: ANOREXIA NERVOSA
     Dosage: 1.25 MG, QD
     Route: 048
     Dates: start: 20160605, end: 20160612
  6. MIYA-BM [Concomitant]
     Active Substance: CLOSTRIDIUM BUTYRICUM SPORES STRAIN M-55
     Dosage: UNK
     Route: 048
     Dates: start: 20160606
  7. PANVITAN                           /05664201/ [Concomitant]
     Active Substance: VITAMINS
     Dosage: UNK
     Dates: start: 20160602

REACTIONS (2)
  - Off label use [Recovered/Resolved]
  - White blood cell count decreased [Recovered/Resolved]

NARRATIVE: CASE EVENT DATE: 20160605
